FAERS Safety Report 5085876-X (Version None)
Quarter: 2006Q3

REPORT INFORMATION
  Report Type: 
  Country: None (occurrence: None)
  Receive Date: 20060817
  Receipt Date: 20060808
  Transmission Date: 20061208
  Serious: Yes (Disabling)
  Sender: FDA-Public Use
  Company Number: HQWYE254209AUG06

PATIENT
  Age: 48 Year
  Sex: Female
  Weight: 78.09 kg

DRUGS (3)
  1. PREMPRO [Suspect]
     Indication: HORMONE REPLACEMENT THERAPY
     Dosage: 0.625/UNKNOWN MPA DAILY, ORAL
     Route: 048
     Dates: start: 20051001, end: 20060601
  2. DETROL [Suspect]
     Dosage: 5 MG DAILY, ORAL
     Route: 048
     Dates: start: 20051001, end: 20060601
  3. PROZAC [Suspect]
     Dosage: 20 MG, ORAL
     Route: 048
     Dates: start: 20051001

REACTIONS (7)
  - AMENORRHOEA [None]
  - DRUG INTERACTION [None]
  - FATIGUE [None]
  - MENSTRUATION IRREGULAR [None]
  - PAIN [None]
  - PYREXIA [None]
  - WEIGHT INCREASED [None]
